FAERS Safety Report 7542824-8 (Version None)
Quarter: 2011Q2

REPORT INFORMATION
  Report Type: 
  Country: None (occurrence: None)
  Receive Date: 20110606
  Receipt Date: 20110525
  Transmission Date: 20111010
  Serious: Yes (Disabling)
  Sender: FDA-Public Use
  Company Number: CIP11000714

PATIENT
  Age: 76 Year
  Sex: Male

DRUGS (4)
  1. BACTRIM [Suspect]
     Indication: URINARY TRACT INFECTION
     Dates: start: 20080101
  2. ENBREL [Concomitant]
  3. MACROBID [Suspect]
     Indication: URINARY TRACT INFECTION
     Dosage: ORAL
     Route: 048
     Dates: start: 20080101
  4. ASPIRIN [Concomitant]

REACTIONS (8)
  - URINARY RETENTION [None]
  - URINE FLOW DECREASED [None]
  - CONSTIPATION [None]
  - AUTONOMIC NEUROPATHY [None]
  - UNEVALUABLE EVENT [None]
  - GASTROINTESTINAL MOTILITY DISORDER [None]
  - CONDITION AGGRAVATED [None]
  - DYSURIA [None]
